FAERS Safety Report 14188488 (Version 1)
Quarter: 2017Q4

REPORT INFORMATION
  Report Type: Spontaneous
  Country: US (occurrence: US)
  Receive Date: 20171114
  Receipt Date: 20171114
  Transmission Date: 20180321
  Serious: No
  Sender: FDA-Public Use
  Company Number: US-BAUSCH-BL-2017-004398

PATIENT
  Age: 10 Year
  Sex: Female
  Weight: 52.21 kg

DRUGS (1)
  1. APRISO [Suspect]
     Active Substance: MESALAMINE
     Indication: COLITIS ULCERATIVE
     Route: 048
     Dates: start: 2016

REACTIONS (3)
  - Product use issue [Unknown]
  - No adverse event [Unknown]
  - Wrong technique in product usage process [Unknown]
